FAERS Safety Report 6251263-1 (Version None)
Quarter: 2009Q2

REPORT INFORMATION
  Report Type: 
  Country: None (occurrence: None)
  Receive Date: 20090630
  Receipt Date: 20090620
  Transmission Date: 20091009
  Serious: Yes (Other)
  Sender: FDA-Public Use
  Company Number: JP-BAYER-200811837BYL

PATIENT
  Age: 60 Year
  Sex: Male
  Weight: 73 kg

DRUGS (17)
  1. NEXAVAR [Suspect]
     Indication: RENAL CELL CARCINOMA STAGE IV
     Dosage: UNIT DOSE: 200 MG
     Route: 048
     Dates: start: 20080502, end: 20080801
  2. NEXAVAR [Suspect]
     Dosage: UNIT DOSE: 200 MG
     Route: 048
     Dates: start: 20080808, end: 20080815
  3. NEXAVAR [Suspect]
     Dosage: UNIT DOSE: 200 MG
     Route: 048
     Dates: start: 20080816
  4. OXYCONTIN [Concomitant]
     Route: 048
     Dates: start: 20080811, end: 20080824
  5. OXYCONTIN [Concomitant]
     Route: 048
     Dates: start: 20080502
  6. OXYCONTIN [Concomitant]
     Route: 048
     Dates: start: 20080825, end: 20080830
  7. OXYCONTIN [Concomitant]
     Route: 048
     Dates: start: 20080901, end: 20080907
  8. OXYCONTIN [Concomitant]
     Route: 048
     Dates: start: 20080908
  9. MAGMITT [Concomitant]
     Dosage: UNIT DOSE: 330 MG
     Route: 048
     Dates: start: 20080523
  10. LULLAN [Concomitant]
     Route: 048
     Dates: start: 20080514
  11. AMOBAN [Concomitant]
     Dosage: UNIT DOSE: 7.5 MG
     Route: 048
     Dates: start: 20080611, end: 20080730
  12. GASTER D [Concomitant]
     Dosage: UNIT DOSE: 20 MG
     Route: 048
     Dates: start: 20080710
  13. BIOFERMIN [Concomitant]
     Dosage: UNIT DOSE: 1 G
     Route: 048
     Dates: start: 20080710
  14. DUROTEP [Concomitant]
     Dosage: UNIT DOSE: 5 MG
     Route: 062
     Dates: start: 20080728
  15. MYSLEE [Concomitant]
     Dosage: UNIT DOSE: 5 MG
     Route: 048
     Dates: start: 20080723
  16. DEPAS [Concomitant]
     Route: 048
     Dates: start: 20080914
  17. TETRAMIDE [Concomitant]
     Route: 048
     Dates: start: 20080918, end: 20080922

REACTIONS (4)
  - HEPATIC FUNCTION ABNORMAL [None]
  - HYPERTENSION [None]
  - MELAENA [None]
  - PALMAR-PLANTAR ERYTHRODYSAESTHESIA SYNDROME [None]
